FAERS Safety Report 8540350-0 (Version None)
Quarter: 2012Q3

REPORT INFORMATION
  Report Type: 
  Country: None (occurrence: None)
  Receive Date: 20120713
  Receipt Date: 20120703
  Transmission Date: 20120928
  Serious: Yes (Hospitalization)
  Sender: FDA-Public Use
  Company Number: 2012030698

PATIENT
  Age: 21 Year
  Sex: Female

DRUGS (4)
  1. HUMAN BLOOD (PLATELETS, HUMAN BLOOD) [Concomitant]
  2. PRIVIGEN [Suspect]
     Indication: THROMBOCYTOPENIA
     Dosage: 3 VIALS, 1 VIAL INTRAVENOUS
     Route: 042
     Dates: start: 20111126, end: 20111127
  3. PLATELETS [Concomitant]
  4. PRIVIGEN [Suspect]

REACTIONS (8)
  - HYPOTENSION [None]
  - TACHYCARDIA [None]
  - HYPERTHERMIA [None]
  - ALTERED STATE OF CONSCIOUSNESS [None]
  - OXYGEN SATURATION DECREASED [None]
  - SEPTIC SHOCK [None]
  - LEUKOCYTOSIS [None]
  - C-REACTIVE PROTEIN INCREASED [None]
